FAERS Safety Report 4319006-6 (Version None)
Quarter: 2004Q1

REPORT INFORMATION
  Report Type: 
  Country: None (occurrence: None)
  Receive Date: 20040316
  Receipt Date: 20040305
  Transmission Date: 20041129
  Serious: Yes (Hospitalization)
  Sender: FDA-Public Use
  Company Number: 2004-03-0399

PATIENT
  Sex: Male

DRUGS (4)
  1. TEMOZOLOMIDE [Suspect]
     Indication: GLIOBLASTOMA MULTIFORME
     Dosage: ORAL
     Route: 048
  2. TEMOZOLOMIDE [Suspect]
     Indication: GLIOBLASTOMA MULTIFORME
     Dosage: ORAL
     Route: 048
  3. TEMOZOLOMIDE [Suspect]
     Indication: GLIOBLASTOMA MULTIFORME
     Dosage: ORAL
     Route: 048
  4. RADIATION THERAPY [Suspect]
     Indication: GLIOBLASTOMA MULTIFORME

REACTIONS (4)
  - ABSCESS [None]
  - IMMUNOSUPPRESSION [None]
  - KAPOSI'S SARCOMA [None]
  - LISTERIOSIS [None]
